FAERS Safety Report 25770346 (Version 1)
Quarter: 2025Q3

REPORT INFORMATION
  Report Type: Spontaneous
  Country: CN (occurrence: CN)
  Receive Date: 20250908
  Receipt Date: 20250908
  Transmission Date: 20251021
  Serious: Yes (Hospitalization, Other)
  Sender: BAXTER
  Company Number: None

PATIENT
  Age: 53 Year
  Sex: Female
  Weight: 55 kg

DRUGS (3)
  1. CYCLOPHOSPHAMIDE [Suspect]
     Active Substance: CYCLOPHOSPHAMIDE
     Indication: Breast cancer female
     Dosage: 0.72 G, QD D2
     Route: 041
     Dates: start: 20250517, end: 20250517
  2. DOCETAXEL [Suspect]
     Active Substance: DOCETAXEL
     Indication: Breast cancer female
     Dosage: 100 MG, QD D1
     Route: 041
     Dates: start: 20250516, end: 20250516
  3. EPIRUBICIN [Suspect]
     Active Substance: EPIRUBICIN
     Indication: Breast cancer female
     Dosage: 144 MG, QD D2
     Route: 041
     Dates: start: 20250517, end: 20250517

REACTIONS (14)
  - Ventricular failure [Recovering/Resolving]
  - Mitral valve incompetence [Recovering/Resolving]
  - Tricuspid valve incompetence [Recovering/Resolving]
  - Supraventricular tachycardia [Recovering/Resolving]
  - Atrial fibrillation [Recovering/Resolving]
  - Heart rate variability decreased [Recovering/Resolving]
  - Heart rate irregular [Recovering/Resolving]
  - Supraventricular extrasystoles [Recovering/Resolving]
  - Pericardial effusion [Recovering/Resolving]
  - Electrocardiogram QT prolonged [Recovering/Resolving]
  - Blood pressure fluctuation [Recovering/Resolving]
  - Brain natriuretic peptide decreased [Recovering/Resolving]
  - Illness [Recovering/Resolving]
  - Atrial tachycardia [Recovering/Resolving]

NARRATIVE: CASE EVENT DATE: 20250528
